FAERS Safety Report 16924679 (Version 1)
Quarter: 2019Q4

REPORT INFORMATION
  Report Type: Spontaneous
  Country: US (occurrence: US)
  Receive Date: 20191015
  Receipt Date: 20191015
  Transmission Date: 20200122
  Serious: Yes (Life-Threatening, Hospitalization)
  Sender: FDA-Public Use
  Company Number: None

PATIENT
  Age: 64 Year
  Sex: Female
  Weight: 58.5 kg

DRUGS (14)
  1. DIGEST-GEN [Concomitant]
  2. IBUPROFEN. [Concomitant]
     Active Substance: IBUPROFEN
  3. SUMATRIPTAN TABLETS, USP 100 MG [Suspect]
     Active Substance: SUMATRIPTAN
     Indication: MIGRAINE
     Dosage: ?          QUANTITY:1 TABLET(S);?
     Route: 048
  4. FICUS CARICA [Concomitant]
  5. MAGNESIUM [Concomitant]
     Active Substance: MAGNESIUM
  6. UNDA 25 [Concomitant]
     Active Substance: CRATAEGUS FRUIT\FILIPENDULA ULMARIA ROOT\GELSEMIUM SEMPERVIRENS ROOT\HAMAMELIS VIRGINIANA BARK\MAGNOLIA GRANDIFLORA FLOWER\SILVER\TIN\VALERIAN
  7. BLACK CURRANT. [Concomitant]
     Active Substance: BLACK CURRANT
  8. DOG ROSE [Concomitant]
  9. BLACK ALDER [Concomitant]
  10. HAWTHORN [Concomitant]
     Active Substance: CRATAEGUS LAEVIGATA FRUIT
  11. UNDA 8 [Concomitant]
     Active Substance: ACHILLEA MILLEFOLIUM\CAPSELLA BURSA-PASTORIS\COPPER\CRATAEGUS FRUIT\EQUISETUM ARVENSE EXTRACT\HAMAMELIS VIRGINIANA BARK\MERCURIALIS PERENNIS\SELENICEREUS GRANDIFLORUS STEM
  12. UNDA 48 [Concomitant]
     Active Substance: ARSENIC TRIOXIDE\CALENDULA OFFICINALIS FLOWERING TOP\GOLD\LEAD\LYCOPODIUM CLAVATUM SPORE\MARSDENIA CONDURANGO BARK\SAVIN\THUJA OCCIDENTALIS LEAFY TWIG
  13. MIGRELIEF [Concomitant]
     Active Substance: DIETARY SUPPLEMENT
  14. TILIA TOMENTOSA [Concomitant]

REACTIONS (4)
  - Myocardial infarction [None]
  - Chest pain [None]
  - Dizziness [None]
  - Musculoskeletal pain [None]

NARRATIVE: CASE EVENT DATE: 20191013
